FAERS Safety Report 19237141 (Version 1)
Quarter: 2021Q2

REPORT INFORMATION
  Report Type: Spontaneous
  Country: US (occurrence: US)
  Receive Date: 20210510
  Receipt Date: 20210510
  Transmission Date: 20210717
  Serious: No
  Sender: FDA-Public Use
  Company Number: None

PATIENT
  Age: 78 Year
  Sex: Male

DRUGS (1)
  1. DAPSONE (DAPSONE 100MG TAB) [Suspect]
     Active Substance: DAPSONE
     Indication: DERMATITIS HERPETIFORMIS
     Route: 048
     Dates: start: 20190826, end: 20210326

REACTIONS (2)
  - Abdominal pain [None]
  - Liver function test increased [None]

NARRATIVE: CASE EVENT DATE: 20210326
